FAERS Safety Report 16402229 (Version 3)
Quarter: 2019Q3

REPORT INFORMATION
  Report Type: Report from Study
  Country: GT (occurrence: GT)
  Receive Date: 20190607
  Receipt Date: 20190725
  Transmission Date: 20191004
  Serious: Yes (Other)
  Sender: FDA-Public Use
  Company Number: PHHY2019GT128664

PATIENT
  Sex: Female
  Weight: 100 kg

DRUGS (3)
  1. SANDOSTATIN LAR DEPOT [Suspect]
     Active Substance: OCTREOTIDE ACETATE
     Indication: AMNESIA
     Dosage: 1 DF, QMO
     Route: 065
     Dates: start: 20190711
  2. SANDOSTATIN LAR DEPOT [Suspect]
     Active Substance: OCTREOTIDE ACETATE
     Indication: NEOPLASM MALIGNANT
  3. SANDOSTATIN LAR DEPOT [Suspect]
     Active Substance: OCTREOTIDE ACETATE
     Indication: SYNCOPE
     Dosage: 20 MG, UNK
     Route: 065
     Dates: start: 20150625

REACTIONS (11)
  - Weight decreased [Recovering/Resolving]
  - Pancreatic disorder [Recovering/Resolving]
  - Second primary malignancy [Unknown]
  - Blood glucose increased [Recovering/Resolving]
  - Product use in unapproved indication [Unknown]
  - Cancer pain [Unknown]
  - Malaise [Unknown]
  - Mobility decreased [Unknown]
  - Lung neoplasm malignant [Unknown]
  - Metastases to spine [Recovering/Resolving]
  - Decreased appetite [Recovering/Resolving]

NARRATIVE: CASE EVENT DATE: 2015
